FAERS Safety Report 15599987 (Version 6)
Quarter: 2024Q2

REPORT INFORMATION
  Report Type: Spontaneous
  Country: ES (occurrence: ES)
  Receive Date: 20181108
  Receipt Date: 20240406
  Transmission Date: 20240715
  Serious: Yes (Life-Threatening, Hospitalization, Other)
  Sender: FDA-Public Use
  Company Number: ES-AUROBINDO-AUR-APL-2018-054056

PATIENT
  Age: 59 Year
  Sex: Male

DRUGS (12)
  1. LEVETIRACETAM [Suspect]
     Active Substance: LEVETIRACETAM
     Indication: Partial seizures
     Dosage: 1 GRAM, 2 TOTAL, TWO LOADING DOSES OF 1 GRAM
     Route: 042
     Dates: start: 201702, end: 201702
  2. CLOBAZAM [Suspect]
     Active Substance: CLOBAZAM
     Indication: Epilepsy
     Dosage: 10 MILLIGRAM, TWO TIMES A DAY, 10 MG, BID
     Route: 065
  3. LACOSAMIDE [Suspect]
     Active Substance: LACOSAMIDE
     Indication: Epilepsy
     Dosage: 200 MILLIGRAM, ONCE A DAY, 100 MG, 2X/DAY (BID)
     Route: 048
     Dates: start: 201801, end: 2018
  4. LACOSAMIDE [Suspect]
     Active Substance: LACOSAMIDE
     Indication: Partial seizures
     Dosage: UNK
     Route: 065
     Dates: start: 2018, end: 201803
  5. LACOSAMIDE [Suspect]
     Active Substance: LACOSAMIDE
     Indication: Frontal lobe epilepsy
  6. PHENYTOIN [Suspect]
     Active Substance: PHENYTOIN
     Indication: Epilepsy
     Dosage: 250 MILLIGRAM, ONCE A DAY, LOADING DOSE: 1 G
     Route: 048
     Dates: start: 2018, end: 2018
  7. PHENYTOIN [Suspect]
     Active Substance: PHENYTOIN
     Indication: Partial seizures
  8. VALPROATE SODIUM [Suspect]
     Active Substance: VALPROATE SODIUM
     Indication: Epilepsy
     Dosage: 1500 MILLIGRAM, ONCE A DAY
     Route: 065
     Dates: start: 201801, end: 2018
  9. VALPROATE SODIUM [Suspect]
     Active Substance: VALPROATE SODIUM
     Indication: Partial seizures
  10. VALPROATE SODIUM [Suspect]
     Active Substance: VALPROATE SODIUM
     Indication: Frontal lobe epilepsy
  11. DEXCHLORPHENIRAMINE [Concomitant]
     Active Substance: DEXCHLORPHENIRAMINE
     Indication: Product used for unknown indication
     Dosage: UNK
     Route: 065
  12. METHYLPREDNISOLONE [Concomitant]
     Active Substance: METHYLPREDNISOLONE
     Indication: Product used for unknown indication
     Dosage: UNK
     Route: 065

REACTIONS (4)
  - Drug reaction with eosinophilia and systemic symptoms [Recovered/Resolved]
  - Leukopenia [Recovered/Resolved]
  - Eosinophilia [Recovered/Resolved]
  - Rash [Recovered/Resolved]

NARRATIVE: CASE EVENT DATE: 20170101
